FAERS Safety Report 5192577-6 (Version None)
Quarter: 2006Q4

REPORT INFORMATION
  Report Type: 
  Country: None (occurrence: None)
  Receive Date: 20061220
  Receipt Date: 20061206
  Transmission Date: 20070319
  Serious: Yes (Other)
  Sender: FDA-Public Use
  Company Number: 061212-0001113

PATIENT
  Sex: 0

DRUGS (1)
  1. NEOPROFEN [Suspect]
     Indication: PATENT DUCTUS ARTERIOSUS
     Dates: start: 20060101, end: 20060101

REACTIONS (1)
  - PULMONARY HAEMORRHAGE [None]
